FAERS Safety Report 14013406 (Version 3)
Quarter: 2017Q4

REPORT INFORMATION
  Report Type: Spontaneous
  Country: US (occurrence: US)
  Receive Date: 20170926
  Receipt Date: 20171102
  Transmission Date: 20180321
  Serious: Yes (Hospitalization)
  Sender: FDA-Public Use
  Company Number: US-VERTEX PHARMACEUTICALS-2017-005211

PATIENT
  Age: 14 Year
  Sex: Female

DRUGS (16)
  1. ORKAMBI [Suspect]
     Active Substance: IVACAFTOR\LUMACAFTOR
     Indication: CYSTIC FIBROSIS
     Dosage: 2 DOSAGE FORM (200/125 MG EACH), BID
     Route: 048
  2. URSODIOL. [Concomitant]
     Active Substance: URSODIOL
     Dosage: 1 DOSAGE FORM, BID
     Route: 048
     Dates: start: 20161205
  3. PULMOZYME [Concomitant]
     Active Substance: DORNASE ALFA
     Dosage: 2.5 MILLILITER, QD
     Route: 055
     Dates: start: 20170217
  4. COMPLETE MULTI VIT [Concomitant]
     Dosage: 1 DOSAGE FORM, QD
     Route: 048
     Dates: start: 20161123
  5. PROAIR HFA [Concomitant]
     Active Substance: ALBUTEROL SULFATE
     Indication: COUGH
     Dosage: 2 PUFFS BY MOUTH BID, INCREASED TO QID WITH INCREASE IN COUGH
     Route: 055
     Dates: start: 20170404
  6. FLUTICASONE. [Concomitant]
     Active Substance: FLUTICASONE
     Dosage: INSTILL 2 SPRAYS INTO EACH NOSTRIL, BID
     Route: 045
     Dates: start: 20161212
  7. MEPHYTON [Concomitant]
     Active Substance: PHYTONADIONE
     Dosage: 0.5 DOSAGE FORM, QD
     Route: 048
  8. CHOLECALCIFEROL [Concomitant]
     Active Substance: CHOLECALCIFEROL
     Dosage: 1 DOSAGE FORM, QD
     Route: 048
     Dates: start: 20170921
  9. HYPERSAL [Concomitant]
     Indication: COUGH
     Dosage: INHALE 1 VIAL VIA NEBULIZER, BID MAY INCREASE TO 4 TIMES PER NEED
     Route: 055
     Dates: start: 20170717
  10. CAYSTON [Concomitant]
     Active Substance: AZTREONAM
     Dosage: INHALE 1 VIAL(S) BY MOUTH TID. ALTERNATE WITH TOBI EVERY 28
     Route: 055
     Dates: start: 20170628
  11. CREON [Concomitant]
     Active Substance: PANCRELIPASE AMYLASE\PANCRELIPASE LIPASE\PANCRELIPASE PROTEASE
     Dosage: 4 CAPS WITH MEALS AND TAKE 2 CAPS WITH SNACKS
     Dates: start: 20170306
  12. FLOVENT HFA [Concomitant]
     Active Substance: FLUTICASONE PROPIONATE
     Dosage: 2 DOSAGE FORM, BID
     Dates: start: 20160926
  13. ZYVOX [Concomitant]
     Active Substance: LINEZOLID
     Dosage: 1 DOSAGE FORM, BID
     Route: 048
     Dates: start: 20171010
  14. AZITHROMYCIN ANHYDROUS. [Concomitant]
     Active Substance: AZITHROMYCIN ANHYDROUS
     Dosage: 1 DOSAGE FORM 3 TIMES WEEKLY
     Route: 048
     Dates: start: 20161205
  15. CETIRIZINE [Concomitant]
     Active Substance: CETIRIZINE HYDROCHLORIDE
     Dosage: 1 DOSAGE FORM, BID
     Route: 048
     Dates: start: 20161128
  16. OMEPRAZOLE. [Concomitant]
     Active Substance: OMEPRAZOLE
     Dosage: 1 CAPSULE BID (TAKE 1/2 TO 1 HOUR BEFORE FOOD)
     Route: 048
     Dates: start: 20161123

REACTIONS (3)
  - Nasal congestion [Not Recovered/Not Resolved]
  - Hypersensitivity [Recovered/Resolved]
  - Treatment noncompliance [Recovered/Resolved]

NARRATIVE: CASE EVENT DATE: 20170804
